FAERS Safety Report 8243136-X (Version None)
Quarter: 2012Q1

REPORT INFORMATION
  Report Type: 
  Country: None (occurrence: None)
  Receive Date: 20120314
  Receipt Date: 20100802
  Transmission Date: 20120608
  Serious: Yes (Disabling)
  Sender: FDA-Public Use
  Company Number: PHHY2010US48245

PATIENT
  Sex: Female

DRUGS (4)
  1. LEXAPRO [Concomitant]
  2. FANAPT [Suspect]
     Indication: SCHIZOPHRENIA, PARANOID TYPE
     Dosage: 6 MG, BID, STARTER PACK, ORAL
     Route: 048
     Dates: start: 20100621, end: 20100713
  3. BUSPAR [Concomitant]
  4. PROPRANOLOL [Concomitant]

REACTIONS (1)
  - URINARY INCONTINENCE [None]
